FAERS Safety Report 17828852 (Version 2)
Quarter: 2021Q2

REPORT INFORMATION
  Report Type: Spontaneous
  Country: US (occurrence: US)
  Receive Date: 20200527
  Receipt Date: 20210513
  Transmission Date: 20210717
  Serious: No
  Sender: FDA-Public Use
  Company Number: US-UCBSA-2019030001

PATIENT
  Age: 76 Year
  Sex: Female

DRUGS (1)
  1. CIMZIA [Suspect]
     Active Substance: CERTOLIZUMAB PEGOL
     Indication: RHEUMATOID ARTHRITIS
     Dosage: 400 MILLIGRAM, WEEKLY (QW)
     Route: 058
     Dates: start: 20190619, end: 20190703

REACTIONS (1)
  - Product administration error [Unknown]

NARRATIVE: CASE EVENT DATE: 20190619
